FAERS Safety Report 11251852 (Version 1)
Quarter: 2015Q3

REPORT INFORMATION
  Report Type: Spontaneous
  Country: US (occurrence: US)
  Receive Date: 20150708
  Receipt Date: 20150708
  Transmission Date: 20151125
  Serious: No
  Sender: FDA-Public Use
  Company Number: US-ELI_LILLY_AND_COMPANY-US201205010853

PATIENT
  Age: 56 Year
  Sex: Female
  Weight: 69.39 kg

DRUGS (8)
  1. PROZAC [Suspect]
     Active Substance: FLUOXETINE HYDROCHLORIDE
     Dosage: 20 MG, QOD
  2. PROZAC [Suspect]
     Active Substance: FLUOXETINE HYDROCHLORIDE
     Dosage: UNK, UNKNOWN
     Dates: start: 20120531
  3. LEXAPRO [Concomitant]
     Active Substance: ESCITALOPRAM OXALATE
     Dosage: UNK
     Dates: start: 201205
  4. BUSPAR [Concomitant]
     Active Substance: BUSPIRONE HYDROCHLORIDE
  5. CELEXA [Concomitant]
     Active Substance: CITALOPRAM HYDROBROMIDE
  6. DOXEPIN [Concomitant]
     Active Substance: DOXEPIN
  7. SIMVASTATIN. [Concomitant]
     Active Substance: SIMVASTATIN
  8. PROZAC [Suspect]
     Active Substance: FLUOXETINE HYDROCHLORIDE
     Indication: DEPRESSION
     Dosage: 20 MG, QD
     Route: 048

REACTIONS (8)
  - Sleep disorder [Not Recovered/Not Resolved]
  - Hypersensitivity [Not Recovered/Not Resolved]
  - Anxiety [Not Recovered/Not Resolved]
  - Depression [Not Recovered/Not Resolved]
  - Dyspnoea [Not Recovered/Not Resolved]
  - Pruritus [Not Recovered/Not Resolved]
  - Mood altered [Not Recovered/Not Resolved]
  - Rash [Not Recovered/Not Resolved]

NARRATIVE: CASE EVENT DATE: 201004
